FAERS Safety Report 7825229-1 (Version None)
Quarter: 2011Q4

REPORT INFORMATION
  Report Type: 
  Country: None (occurrence: None)
  Receive Date: 20111019
  Receipt Date: 20111012
  Transmission Date: 20120403
  Serious: Yes (Hospitalization)
  Sender: FDA-Public Use
  Company Number: US-GLAXOSMITHKLINE-A0718416A

PATIENT
  Age: 54 Year
  Sex: Male
  Weight: 88.2 kg

DRUGS (7)
  1. BYETTA [Concomitant]
  2. ZOCOR [Concomitant]
  3. INSULIN [Concomitant]
  4. ACCUPRIL [Concomitant]
  5. AVANDIA [Suspect]
     Indication: TYPE 2 DIABETES MELLITUS
     Dosage: 8MG PER DAY
     Route: 048
     Dates: start: 20050117, end: 20071001
  6. GLUCOPHAGE [Concomitant]
  7. GLUCOVANCE [Concomitant]

REACTIONS (5)
  - CORONARY ARTERY DISEASE [None]
  - MYOCARDIAL INFARCTION [None]
  - CARDIAC FAILURE CONGESTIVE [None]
  - CARDIOVASCULAR DISORDER [None]
  - ARRHYTHMIA [None]
